FAERS Safety Report 7724634-1 (Version None)
Quarter: 2011Q3

REPORT INFORMATION
  Report Type: 
  Country: None (occurrence: None)
  Receive Date: 20110901
  Receipt Date: 20110822
  Transmission Date: 20111222
  Serious: Yes (Hospitalization, Other)
  Sender: FDA-Public Use
  Company Number: US-PFIZER INC-2011195303

PATIENT
  Age: 39 Year
  Sex: Male

DRUGS (4)
  1. AVONEX [Suspect]
     Dosage: 30 UG, WEEKLY
     Route: 030
     Dates: start: 20071201
  2. PRISTIQ [Suspect]
     Dosage: UNK
     Dates: start: 20110101
  3. AVONEX [Suspect]
     Indication: MULTIPLE SCLEROSIS
     Dosage: UNK
     Route: 030
  4. AVONEX [Suspect]
     Dosage: UNK
     Route: 030
     Dates: start: 20110201

REACTIONS (2)
  - HOMICIDAL IDEATION [None]
  - AGITATION [None]
